FAERS Safety Report 10732884 (Version 3)
Quarter: 2015Q1

REPORT INFORMATION
  Report Type: Spontaneous
  Country: US (occurrence: US)
  Receive Date: 20150123
  Receipt Date: 20150310
  Transmission Date: 20150721
  Serious: No
  Sender: FDA-Public Use
  Company Number: US-B.I. PHARMACEUTICALS,INC./RIDGEFIELD-2015-BI-01724BP

PATIENT
  Age: 81 Year
  Sex: Female
  Weight: 51.71 kg

DRUGS (2)
  1. ATROVENT [Suspect]
     Active Substance: IPRATROPIUM BROMIDE
     Indication: UPPER RESPIRATORY TRACT CONGESTION
     Dosage: DOSE PER APPLICATION: 2 SPRAY; DAILY DOSE: 4 SPRAY
     Route: 055
     Dates: start: 20141228, end: 20150106
  2. ATROVENT [Suspect]
     Active Substance: IPRATROPIUM BROMIDE
     Indication: BREATH SOUNDS ABNORMAL

REACTIONS (4)
  - Product quality issue [Not Recovered/Not Resolved]
  - Off label use [Unknown]
  - Feeling abnormal [Recovered/Resolved]
  - Retching [Recovered/Resolved]

NARRATIVE: CASE EVENT DATE: 20150106
